FAERS Safety Report 11676910 (Version 1)
Quarter: 2015Q4

REPORT INFORMATION
  Report Type: Spontaneous
  Country: US (occurrence: US)
  Receive Date: 20151027
  Receipt Date: 20151027
  Transmission Date: 20160304
  Serious: No
  Sender: FDA-Public Use
  Company Number: US-ELI_LILLY_AND_COMPANY-US200912006304

PATIENT
  Age: 79 Year
  Sex: Female

DRUGS (5)
  1. FORTEO [Suspect]
     Active Substance: TERIPARATIDE
     Indication: OSTEOPOROSIS
     Dosage: 20 UG, DAILY (1/D)
     Route: 058
     Dates: start: 20090826
  2. FORTEO [Suspect]
     Active Substance: TERIPARATIDE
     Dosage: 20 UG, DAILY (1/D)
     Route: 065
  3. FORTEO [Suspect]
     Active Substance: TERIPARATIDE
     Dosage: 20 UG, DAILY (1/D)
     Dates: start: 20090826
  4. HYDROCODONE [Concomitant]
     Active Substance: HYDROCODONE
  5. TYLENOL [Concomitant]
     Active Substance: ACETAMINOPHEN

REACTIONS (9)
  - Weight decreased [Unknown]
  - Ligament injury [Recovering/Resolving]
  - Dizziness [Not Recovered/Not Resolved]
  - Fall [Recovered/Resolved]
  - Back pain [Recovering/Resolving]
  - Spinal fracture [Recovering/Resolving]
  - Decreased appetite [Unknown]
  - Back injury [Recovering/Resolving]
  - Fall [Recovered/Resolved]

NARRATIVE: CASE EVENT DATE: 20090703
